FAERS Safety Report 26203677 (Version 1)
Quarter: 2025Q4

REPORT INFORMATION
  Report Type: Spontaneous
  Country: GB (occurrence: GB)
  Receive Date: 20251226
  Receipt Date: 20251226
  Transmission Date: 20260117
  Serious: Yes (Other)
  Sender: GUERBET
  Company Number: None

PATIENT
  Age: 55 Year
  Sex: Female
  Weight: 51 kg

DRUGS (2)
  1. DOTAREM [Suspect]
     Active Substance: GADOTERATE MEGLUMINE
     Indication: Magnetic resonance imaging
     Dates: start: 20251212, end: 20251212
  2. FLUTICASONE [Concomitant]
     Active Substance: FLUTICASONE
     Indication: Asthma

REACTIONS (5)
  - Fibromyalgia [Not Recovered/Not Resolved]
  - Depressed mood [Unknown]
  - Discomfort [Unknown]
  - Pain [Unknown]
  - Sleep disorder [Unknown]

NARRATIVE: CASE EVENT DATE: 20251213
